FAERS Safety Report 9188396 (Version 1)
Quarter: 2012Q4

REPORT INFORMATION
  Report Type: 
  Country: MX (occurrence: MX)
  Receive Date: 20121205
  Receipt Date: 20121205
  Transmission Date: 20130627
  Serious: Yes (Other)
  Sender: FDA-Public Use
  Company Number: PHHY2012MX111410

PATIENT
  Age: 60 Year
  Sex: Female

DRUGS (3)
  1. DIOVAN [Suspect]
     Indication: HYPERTENSION
     Dosage: 160 mg, daily
     Route: 048
  2. INSULIN [Concomitant]
     Indication: BLOOD GLUCOSE
     Dosage: 11 IU, QD
     Dates: start: 2002
  3. METFORMIN [Concomitant]
     Dosage: 850 mg, daily

REACTIONS (3)
  - Fall [Recovered/Resolved]
  - Femur fracture [Recovered/Resolved]
  - Pain [Unknown]
